FAERS Safety Report 7322320-3 (Version None)
Quarter: 2011Q1

REPORT INFORMATION
  Report Type: 
  Country: None (occurrence: None)
  Receive Date: 20110301
  Receipt Date: 20110217
  Transmission Date: 20110831
  Serious: No
  Sender: FDA-Public Use
  Company Number: US-BIOGENIDEC-2011BI006636

PATIENT
  Age: 34 Year
  Sex: Female

DRUGS (2)
  1. PREDNISONE [Concomitant]
     Indication: PREMEDICATION
  2. TYSABRI [Suspect]
     Indication: MULTIPLE SCLEROSIS
     Route: 042
     Dates: start: 20101130

REACTIONS (5)
  - HEADACHE [None]
  - STRESS [None]
  - BACK PAIN [None]
  - PAIN IN EXTREMITY [None]
  - WEIGHT INCREASED [None]
